FAERS Safety Report 9265376 (Version 3)
Quarter: 2014Q1

REPORT INFORMATION
  Report Type: Spontaneous
  Country: FR (occurrence: FR)
  Receive Date: 20130501
  Receipt Date: 20140224
  Transmission Date: 20141002
  Serious: Yes (Death, Life-Threatening, Hospitalization)
  Sender: FDA-Public Use
  Company Number: FR-ASTRAZENECA-2013SE29290

PATIENT
  Age: 30 Year
  Sex: Male

DRUGS (12)
  1. XEROQUEL [Suspect]
     Indication: PSYCHOTIC DISORDER
     Route: 048
     Dates: start: 20130115
  2. XEROQUEL [Suspect]
     Indication: PSYCHOTIC DISORDER
     Route: 048
     Dates: start: 20130123, end: 20130128
  3. TERCIAN [Suspect]
     Route: 048
     Dates: start: 20130115
  4. TERCIAN [Suspect]
     Route: 048
     Dates: start: 20130122, end: 20130128
  5. THERALENE [Suspect]
     Route: 048
     Dates: start: 20130115
  6. THERALENE [Suspect]
     Route: 048
     Dates: start: 20130116, end: 20130128
  7. BUPRENORPHIN [Suspect]
     Route: 048
     Dates: start: 20130115
  8. BUPRENORPHIN [Suspect]
     Route: 048
     Dates: start: 20130116, end: 20130128
  9. DUPHALAC [Concomitant]
     Dates: start: 20130115
  10. VALIUM [Concomitant]
     Dates: start: 20130115
  11. SPASFON [Concomitant]
     Dates: start: 20130115
  12. NORMACOL [Concomitant]
     Dates: start: 20130115

REACTIONS (7)
  - Intestinal obstruction [Fatal]
  - Faecaloma [Fatal]
  - Shock [Fatal]
  - Pyrexia [Unknown]
  - C-reactive protein increased [Unknown]
  - Electrocardiogram repolarisation abnormality [Unknown]
  - Gastrointestinal haemorrhage [Unknown]
